FAERS Safety Report 13498907 (Version 1)
Quarter: 2017Q2

REPORT INFORMATION
  Report Type: Spontaneous
  Country: US (occurrence: US)
  Receive Date: 20170430
  Receipt Date: 20170430
  Transmission Date: 20170830
  Serious: Yes (Disabling, Other)
  Sender: FDA-Public Use
  Company Number: None

PATIENT
  Age: 29 Year
  Sex: Male
  Weight: 58.5 kg

DRUGS (5)
  1. LISINOPRIL. [Concomitant]
     Active Substance: LISINOPRIL
  2. ADHD CARE SYNERGY [Concomitant]
     Active Substance: SAGE OIL
  3. XANAX [Concomitant]
     Active Substance: ALPRAZOLAM
  4. PAXIL [Suspect]
     Active Substance: PAROXETINE HYDROCHLORIDE
     Indication: BIPOLAR DISORDER
     Dosage: ?          QUANTITY:60 TABLET(S);?
     Route: 048
     Dates: start: 20170210, end: 20170406
  5. TREMADOL ANTI INFLAMMATORY STEROID [Concomitant]

REACTIONS (4)
  - Diplopia [None]
  - Amnesia [None]
  - Serotonin syndrome [None]
  - Withdrawal syndrome [None]

NARRATIVE: CASE EVENT DATE: 20170408
